FAERS Safety Report 23436269 (Version 1)
Quarter: 2024Q1

REPORT INFORMATION
  Report Type: Report from Study
  Country: DE (occurrence: DE)
  Receive Date: 20240124
  Receipt Date: 20240124
  Transmission Date: 20240409
  Serious: Yes (Other)
  Sender: FDA-Public Use
  Company Number: DE-TAKEDA-2024TUS006648

PATIENT
  Age: 33 Year
  Sex: Female

DRUGS (14)
  1. TEDUGLUTIDE [Suspect]
     Active Substance: TEDUGLUTIDE
     Indication: Short-bowel syndrome
     Dosage: 4.3 MILLIGRAM, QD
     Route: 042
     Dates: start: 20150630, end: 20170703
  2. TEDUGLUTIDE [Suspect]
     Active Substance: TEDUGLUTIDE
     Indication: Short-bowel syndrome
     Dosage: 4.3 MILLIGRAM, QD
     Route: 042
     Dates: start: 20150630, end: 20170703
  3. TEDUGLUTIDE [Suspect]
     Active Substance: TEDUGLUTIDE
     Indication: Short-bowel syndrome
     Dosage: 4.3 MILLIGRAM, QD
     Route: 042
     Dates: start: 20150630, end: 20170703
  4. TEDUGLUTIDE [Suspect]
     Active Substance: TEDUGLUTIDE
     Indication: Short-bowel syndrome
     Dosage: 4.3 MILLIGRAM, QD
     Route: 042
     Dates: start: 20150630, end: 20170703
  5. TEDUGLUTIDE [Suspect]
     Active Substance: TEDUGLUTIDE
     Dosage: 4.3 MILLIGRAM, QD
     Route: 042
     Dates: start: 201710, end: 201810
  6. TEDUGLUTIDE [Suspect]
     Active Substance: TEDUGLUTIDE
     Dosage: 4.3 MILLIGRAM, QD
     Route: 042
     Dates: start: 201710, end: 201810
  7. TEDUGLUTIDE [Suspect]
     Active Substance: TEDUGLUTIDE
     Dosage: 4.3 MILLIGRAM, QD
     Route: 042
     Dates: start: 201710, end: 201810
  8. TEDUGLUTIDE [Suspect]
     Active Substance: TEDUGLUTIDE
     Dosage: 4.3 MILLIGRAM, QD
     Route: 042
     Dates: start: 201710, end: 201810
  9. TEDUGLUTIDE [Suspect]
     Active Substance: TEDUGLUTIDE
     Dosage: 4 MILLIGRAM, QD
     Route: 042
     Dates: start: 201810
  10. TEDUGLUTIDE [Suspect]
     Active Substance: TEDUGLUTIDE
     Dosage: 4 MILLIGRAM, QD
     Route: 042
     Dates: start: 201810
  11. TEDUGLUTIDE [Suspect]
     Active Substance: TEDUGLUTIDE
     Dosage: 4 MILLIGRAM, QD
     Route: 042
     Dates: start: 201810
  12. TEDUGLUTIDE [Suspect]
     Active Substance: TEDUGLUTIDE
     Dosage: 4 MILLIGRAM, QD
     Route: 042
     Dates: start: 201810
  13. DIETARY SUPPLEMENT\HERBALS [Concomitant]
     Active Substance: DIETARY SUPPLEMENT\HERBALS
     Indication: Nasopharyngitis
     Dosage: UNK
     Route: 048
     Dates: start: 201901, end: 201902
  14. ACETAMINOPHEN [Concomitant]
     Active Substance: ACETAMINOPHEN
     Indication: Nasopharyngitis
     Dosage: 500 MILLIGRAM, QD
     Route: 048
     Dates: start: 201901, end: 201902

REACTIONS (1)
  - Polyarthritis [Not Recovered/Not Resolved]

NARRATIVE: CASE EVENT DATE: 20220302
